FAERS Safety Report 6132490-0 (Version None)
Quarter: 2009Q1

REPORT INFORMATION
  Report Type: 
  Country: None (occurrence: None)
  Receive Date: 20090324
  Receipt Date: 20090310
  Transmission Date: 20090719
  Serious: Yes (Other)
  Sender: FDA-Public Use
  Company Number: 2009EN000071

PATIENT
  Age: 18 Year

DRUGS (1)
  1. ONCASPAR [Suspect]
     Indication: DRUG USE FOR UNKNOWN INDICATION

REACTIONS (8)
  - ABDOMINAL PAIN [None]
  - BLOOD PRESSURE DECREASED [None]
  - HAEMORRHAGE [None]
  - HEPATIC FAILURE [None]
  - HEPATOMEGALY [None]
  - HYPOTENSION [None]
  - RENAL FAILURE [None]
  - WEIGHT INCREASED [None]
